FAERS Safety Report 8518877-7 (Version None)
Quarter: 2012Q3

REPORT INFORMATION
  Report Type: 
  Country: None (occurrence: None)
  Receive Date: 20120718
  Receipt Date: 20120716
  Transmission Date: 20120928
  Serious: Yes (Other)
  Sender: FDA-Public Use
  Company Number: PHEH2012US011074

PATIENT
  Sex: Female

DRUGS (5)
  1. DIOVAN [Suspect]
     Dosage: 160 MG, UNK
  2. LIPIZIDE [Concomitant]
     Dosage: 20 MG, QD
  3. LANTUS [Concomitant]
     Dosage: 40 U- 5 U,DAILY
  4. DIOVAN [Suspect]
     Dosage: 160 MG, BID
  5. METFORMIN HYDROCHLORIDE [Concomitant]
     Dosage: 1000 MG, QD

REACTIONS (3)
  - BLOOD PRESSURE INADEQUATELY CONTROLLED [None]
  - PULMONARY HYPERTENSION [None]
  - BLOOD GLUCOSE ABNORMAL [None]
